FAERS Safety Report 7894807-6 (Version None)
Quarter: 2011Q4

REPORT INFORMATION
  Report Type: 
  Country: None (occurrence: None)
  Receive Date: 20111102
  Receipt Date: 20111021
  Transmission Date: 20120403
  Serious: Yes (Other)
  Sender: FDA-Public Use
  Company Number: 2011SP049976

PATIENT
  Sex: Male

DRUGS (3)
  1. INTRON A [Suspect]
     Indication: HEPATITIS C
     Dosage: TIW;UNK
     Dates: start: 19951006, end: 19960830
  2. PEG-INTRON [Suspect]
     Indication: HEPATITIS C
     Dosage: UNK;UNK
  3. RIBAVIRIN [Suspect]
     Indication: HEPATITIS C
     Dosage: UNK;UNK

REACTIONS (1)
  - HEPATIC CIRRHOSIS [None]
